FAERS Safety Report 5533108-8 (Version None)
Quarter: 2007Q4

REPORT INFORMATION
  Report Type: 
  Country: None (occurrence: None)
  Receive Date: 20071130
  Receipt Date: 20071130
  Transmission Date: 20080405
  Serious: Yes (Life-Threatening)
  Sender: FDA-Public Use
  Company Number: None

PATIENT
  Age: 63 Year
  Sex: Female
  Weight: 117.9352 kg

DRUGS (2)
  1. ADVAIR DISKUS 250/50 [Suspect]
     Indication: ASTHMA
     Dosage: ONE INHALATION  TWICE A DAY  INHAL
     Route: 055
     Dates: start: 20050401, end: 20070301
  2. ADVAIR DISKUS 250/50 [Suspect]
     Indication: CHRONIC OBSTRUCTIVE PULMONARY DISEASE
     Dosage: ONE INHALATION  TWICE A DAY  INHAL
     Route: 055
     Dates: start: 20050401, end: 20070301

REACTIONS (8)
  - LACRIMATION INCREASED [None]
  - PRODUCTIVE COUGH [None]
  - RESPIRATORY DISORDER [None]
  - SALIVARY HYPERSECRETION [None]
  - SINUS CONGESTION [None]
  - SLEEP DISORDER [None]
  - SNEEZING [None]
  - SPEECH DISORDER [None]
